FAERS Safety Report 20527082 (Version 4)
Quarter: 2022Q1

REPORT INFORMATION
  Report Type: Report from Study
  Country: DE (occurrence: DE)
  Receive Date: 20220228
  Receipt Date: 20220314
  Transmission Date: 20220423
  Serious: Yes (Life-Threatening, Hospitalization, Other)
  Sender: FDA-Public Use
  Company Number: DE-AMGEN-DEUCT2022033983

PATIENT
  Age: 60 Year
  Sex: Male
  Weight: 107 kg

DRUGS (24)
  1. CARFILZOMIB [Suspect]
     Active Substance: CARFILZOMIB
     Indication: Plasma cell myeloma
     Dosage: 47 MILLIGRAM, PER CHEMO REGIM
     Route: 042
     Dates: start: 20191104, end: 20191105
  2. CARFILZOMIB [Suspect]
     Active Substance: CARFILZOMIB
     Dosage: 84.6 MILLIGRAM, PER CHEMO REGIM
     Route: 042
     Dates: start: 20191111, end: 20200320
  3. CARFILZOMIB [Suspect]
     Active Substance: CARFILZOMIB
     Dosage: 81 MILLIGRAM, PER CHEMO REGIM
     Route: 042
     Dates: start: 20200402, end: 20200514
  4. CARFILZOMIB [Suspect]
     Active Substance: CARFILZOMIB
     Dosage: 81.72 MILLIGRAM, PER CHEMO REGIM
     Route: 042
     Dates: start: 20200929, end: 20210107
  5. FILGRASTIM [Suspect]
     Active Substance: FILGRASTIM
     Indication: Leukopenia
     Dosage: UNK
     Route: 058
  6. ELOTUZUMAB [Suspect]
     Active Substance: ELOTUZUMAB
     Indication: Plasma cell myeloma
     Dosage: 1200 MILLIGRAM, PER CHEMO REGIM
     Route: 042
     Dates: start: 20191104, end: 20200318
  7. ELOTUZUMAB [Suspect]
     Active Substance: ELOTUZUMAB
     Dosage: 1080 MILLIGRAM, PER CHEMO REGIM
     Route: 042
     Dates: start: 20200402, end: 20200414
  8. ELOTUZUMAB [Suspect]
     Active Substance: ELOTUZUMAB
     Dosage: 1100 MILLIGRAM, PER CHEMO REGIM
     Route: 042
     Dates: start: 20200929, end: 20210105
  9. ELOTUZUMAB [Suspect]
     Active Substance: ELOTUZUMAB
     Dosage: 2200 MILLIGRAM, PER CHEMO REGIM
     Route: 042
     Dates: start: 20210202, end: 20220105
  10. REVLIMID [Suspect]
     Active Substance: LENALIDOMIDE
     Indication: Plasma cell myeloma
     Dosage: 25 MILLIGRAM, PER CHEMO REGIM
     Route: 048
     Dates: start: 20191104, end: 20200520
  11. REVLIMID [Suspect]
     Active Substance: LENALIDOMIDE
     Dosage: 15 MILLIGRAM, PER CHEMO REGIM
     Route: 048
     Dates: start: 20200929, end: 20210106
  12. REVLIMID [Suspect]
     Active Substance: LENALIDOMIDE
     Dosage: 10 MILLIGRAM, PER CHEMO REGIM
     Route: 048
     Dates: start: 20210205, end: 202202
  13. DEXAMETHASONE [Suspect]
     Active Substance: DEXAMETHASONE
     Indication: Plasma cell myeloma
     Dosage: 8 MILLIGRAM, PER CHEMO REGIM
     Route: 048
     Dates: start: 20191104, end: 20191222
  14. DEXAMETHASONE [Suspect]
     Active Substance: DEXAMETHASONE
     Dosage: 40 MILLIGRAM, PER CHEMO REGIM
     Route: 048
     Dates: start: 20200106, end: 20200106
  15. DEXAMETHASONE [Suspect]
     Active Substance: DEXAMETHASONE
     Dosage: 20 MILLIGRAM, PER CHEMO REGIM
     Route: 048
     Dates: start: 20200113, end: 20200113
  16. DEXAMETHASONE [Suspect]
     Active Substance: DEXAMETHASONE
     Dosage: 40 MILLIGRAM, PER CHEMO REGIM
     Route: 048
     Dates: start: 20200120, end: 20200120
  17. DEXAMETHASONE [Suspect]
     Active Substance: DEXAMETHASONE
     Dosage: 20 MILLIGRAM, PER CHEMO REGIM
     Route: 048
     Dates: start: 20200319, end: 20200319
  18. DEXAMETHASONE [Suspect]
     Active Substance: DEXAMETHASONE
     Dosage: 40 MILLIGRAM, PER CHEMO REGIM
     Route: 048
     Dates: start: 20200326, end: 20200326
  19. DEXAMETHASONE [Suspect]
     Active Substance: DEXAMETHASONE
     Dosage: 20 MILLIGRAM, PER CHEMO REGIM
     Route: 048
     Dates: start: 20201006, end: 20201229
  20. DEXAMETHASONE [Suspect]
     Active Substance: DEXAMETHASONE
     Dosage: 28 MILLIGRAM, PER CHEMO REGIM
     Route: 048
     Dates: start: 20191104, end: 20210105
  21. PLERIXAFOR [Suspect]
     Active Substance: PLERIXAFOR
     Indication: Haematopoietic stem cell mobilisation
     Dosage: 0.24 MILLIGRAM/KILOGRAM, QD
     Route: 058
     Dates: start: 20200218, end: 20200218
  22. CYCLOPHOSPHAMIDE [Suspect]
     Active Substance: CYCLOPHOSPHAMIDE
     Indication: Haematopoietic stem cell mobilisation
     Dosage: 4.5 UNK, QD
     Route: 042
     Dates: start: 20200131, end: 20200131
  23. MELPHALAN [Suspect]
     Active Substance: MELPHALAN
     Indication: Prophylaxis
     Dosage: 200 MILLIGRAM/SQ. METER, QD
     Route: 042
     Dates: start: 20200626, end: 20200627
  24. VALSARTAN [Concomitant]
     Active Substance: VALSARTAN
     Indication: Hypertension
     Dosage: 240 MILLIGRAM, QD
     Route: 048

REACTIONS (1)
  - Acute myeloid leukaemia [Not Recovered/Not Resolved]

NARRATIVE: CASE EVENT DATE: 20220217
